FAERS Safety Report 7486360-6 (Version None)
Quarter: 2011Q2

REPORT INFORMATION
  Report Type: 
  Country: None (occurrence: None)
  Receive Date: 20110517
  Receipt Date: 20110510
  Transmission Date: 20111010
  Serious: Yes (Other)
  Sender: FDA-Public Use
  Company Number: GXKR2008GB04641

PATIENT
  Age: 58 Year
  Sex: Female

DRUGS (1)
  1. WARFARIN SODIUM [Suspect]
     Indication: ATRIAL FIBRILLATION
     Dosage: UNK UKN, UNK

REACTIONS (1)
  - CALCIPHYLAXIS [None]
